FAERS Safety Report 6793576-0 (Version None)
Quarter: 2010Q2

REPORT INFORMATION
  Report Type: 
  Country: None (occurrence: None)
  Receive Date: 20100624
  Receipt Date: 20090214
  Transmission Date: 20101027
  Serious: No
  Sender: FDA-Public Use
  Company Number: US-PFIZER INC-2008092736

PATIENT
  Age: 39 Year
  Sex: Female

DRUGS (2)
  1. GEODON [Suspect]
     Dosage: 80 MG, 2X/DAY
     Route: 048
     Dates: start: 20060101
  2. LITHIUM [Concomitant]
     Dosage: 300 MG, 1X/DAY

REACTIONS (2)
  - CHEST DISCOMFORT [None]
  - CHEST PAIN [None]
